FAERS Safety Report 10899041 (Version 2)
Quarter: 2015Q1

REPORT INFORMATION
  Report Type: Spontaneous
  Country: US (occurrence: US)
  Receive Date: 20150309
  Receipt Date: 20150320
  Transmission Date: 20150721
  Serious: Yes (Death, Other)
  Sender: FDA-Public Use
  Company Number: US-AMGEN-USASP2015019327

PATIENT
  Age: 24 Year
  Sex: Male

DRUGS (1)
  1. BLINCYTO [Suspect]
     Active Substance: BLINATUMOMAB
     Indication: ACUTE LYMPHOCYTIC LEUKAEMIA
     Dosage: 9 MUG, QD, INFUSION
     Route: 065
     Dates: start: 201503, end: 201503

REACTIONS (8)
  - Oxygen saturation decreased [Unknown]
  - Catheter site haemorrhage [Unknown]
  - Personality change [Unknown]
  - Dyspnoea [Unknown]
  - Malaise [Unknown]
  - Tachycardia [Unknown]
  - Death [Fatal]
  - Tachypnoea [Unknown]

NARRATIVE: CASE EVENT DATE: 20150307
